FAERS Safety Report 23782193 (Version 1)
Quarter: 2024Q2

REPORT INFORMATION
  Report Type: Spontaneous
  Country: US (occurrence: US)
  Receive Date: 20240425
  Receipt Date: 20240425
  Transmission Date: 20240716
  Serious: Yes (Hospitalization)
  Sender: FDA-Public Use
  Company Number: US-SA-SAC20240424000569

PATIENT
  Age: 41 Year
  Sex: Female
  Weight: 61.6 kg

DRUGS (3)
  1. DUPIXENT [Suspect]
     Active Substance: DUPILUMAB
     Indication: Dermatitis atopic
     Dosage: UNK (OTHER)
     Route: 058
  2. TACROLIMUS [Concomitant]
     Active Substance: TACROLIMUS
  3. HALOBETASOL PROPIONATE [Concomitant]
     Active Substance: HALOBETASOL PROPIONATE

REACTIONS (5)
  - Dyspnoea [Unknown]
  - Chest pain [Unknown]
  - Gingival pain [Unknown]
  - Eating disorder [Unknown]
  - Toothache [Unknown]

NARRATIVE: CASE EVENT DATE: 20240415
